FAERS Safety Report 5972009-8 (Version None)
Quarter: 2008Q4

REPORT INFORMATION
  Report Type: 
  Country: None (occurrence: None)
  Receive Date: 20081125
  Receipt Date: 20081110
  Transmission Date: 20090506
  Serious: Yes (Hospitalization)
  Sender: FDA-Public Use
  Company Number: 2008AL011714

PATIENT
  Age: 18 Year
  Sex: Male

DRUGS (1)
  1. ACETAMINOPHEN [Suspect]
     Indication: INTENTIONAL OVERDOSE
     Dosage: 30 GM; X1; PO
     Route: 048

REACTIONS (3)
  - ACUTE HEPATIC FAILURE [None]
  - HEPATOMEGALY [None]
  - INTENTIONAL OVERDOSE [None]
